FAERS Safety Report 10235365 (Version 3)
Quarter: 2014Q3

REPORT INFORMATION
  Report Type: Spontaneous
  Country: US (occurrence: US)
  Receive Date: 20140613
  Receipt Date: 20140805
  Transmission Date: 20150326
  Serious: No
  Sender: FDA-Public Use
  Company Number: US-PFIZER INC-2014160310

PATIENT
  Age: 72 Year
  Sex: Female
  Weight: 70 kg

DRUGS (6)
  1. PREMARIN [Suspect]
     Active Substance: ESTROGENS, CONJUGATED
     Indication: ATROPHIC VULVOVAGINITIS
     Dosage: UNK
     Route: 067
     Dates: start: 20140604, end: 201406
  2. IBUPROFEN. [Concomitant]
     Active Substance: IBUPROFEN
     Indication: ARTHRITIS
     Dosage: 400 MG, 2X/DAY
  3. ESTRACE [Suspect]
     Active Substance: ESTRADIOL
     Indication: FUNGAL INFECTION
  4. IRBESARTAN. [Concomitant]
     Active Substance: IRBESARTAN
     Indication: HYPERTENSION
     Dosage: 150 MG, 1X/DAY
  5. LEVOTHYROXINE [Concomitant]
     Active Substance: LEVOTHYROXINE
     Indication: HYPOTHYROIDISM
     Dosage: 0.88 UG, 1X/DAY
  6. AMLODIPINE [Concomitant]
     Active Substance: AMLODIPINE BESYLATE
     Indication: HYPERTENSION
     Dosage: 2.5 MG, 1X/DAY

REACTIONS (4)
  - Blood oestrogen decreased [Unknown]
  - Burning sensation [Unknown]
  - Vaginal infection [Unknown]
  - Pruritus [Unknown]

NARRATIVE: CASE EVENT DATE: 20140607
